FAERS Safety Report 7758763-3 (Version None)
Quarter: 2011Q3

REPORT INFORMATION
  Report Type: 
  Country: None (occurrence: None)
  Receive Date: 20110916
  Receipt Date: 20110916
  Transmission Date: 20111222
  Serious: Yes (Hospitalization)
  Sender: FDA-Public Use
  Company Number: None

PATIENT
  Age: 68 Year
  Sex: Female

DRUGS (7)
  1. PERCOCET [Concomitant]
  2. PRESERVISION VITAMINS [Concomitant]
  3. RANIBIZUMAB 2.0MG [Suspect]
     Indication: MACULAR DEGENERATION
     Dosage: PRN-INTRAVITREAL INJECT
     Dates: start: 20100304, end: 20110824
  4. PAXIL [Concomitant]
  5. NASAREL [Concomitant]
  6. ACETAMINOPHEN [Concomitant]
  7. PRILOSEC [Concomitant]

REACTIONS (4)
  - VOMITING [None]
  - CHOLELITHIASIS [None]
  - CHOLECYSTITIS ACUTE [None]
  - DIARRHOEA [None]
